FAERS Safety Report 15427514 (Version 1)
Quarter: 2018Q4

REPORT INFORMATION
  Report Type: Spontaneous
  Country: DE (occurrence: DE)
  Receive Date: 20180925
  Receipt Date: 20180925
  Transmission Date: 20190204
  Serious: Yes (Hospitalization)
  Sender: FDA-Public Use
  Company Number: PHHY2018DE107371

PATIENT
  Sex: Female

DRUGS (51)
  1. ALVALIN [Concomitant]
     Indication: PRODUCT USED FOR UNKNOWN INDICATION
     Dosage: UNK
     Route: 065
     Dates: start: 20140129
  2. INUVAIR [Concomitant]
     Active Substance: BECLOMETHASONE DIPROPIONATE\FORMOTEROL FUMARATE
     Indication: PRODUCT USED FOR UNKNOWN INDICATION
     Dosage: UNK (100/6UG)
     Route: 065
     Dates: start: 20140206
  3. ESOMEPRAZOL TAD [Concomitant]
     Indication: PRODUCT USED FOR UNKNOWN INDICATION
     Dosage: UNK
     Route: 065
     Dates: start: 20140403
  4. ESOMEPRAZOL TAD [Concomitant]
     Dosage: UNK
     Route: 065
     Dates: start: 20140916
  5. VALSARTAN DURA [Concomitant]
     Active Substance: VALSARTAN
     Dosage: UNK  (40MG)
     Route: 065
     Dates: start: 20140709
  6. PROMETHAZINE [Concomitant]
     Active Substance: PROMETHAZINE\PROMETHAZINE HYDROCHLORIDE
     Dosage: UNK
     Route: 065
     Dates: start: 20141222
  7. INUVAIR [Concomitant]
     Active Substance: BECLOMETHASONE DIPROPIONATE\FORMOTEROL FUMARATE
     Dosage: UNK (100/6UG)
     Route: 065
     Dates: start: 20140429
  8. NOVAMINSULFON [Concomitant]
     Active Substance: METAMIZOLE
     Indication: PRODUCT USED FOR UNKNOWN INDICATION
     Dosage: UNK
     Route: 065
     Dates: start: 20140403
  9. VALSARTAN DURA [Concomitant]
     Active Substance: VALSARTAN
     Dosage: UNK (80MG)
     Route: 065
     Dates: start: 20141120
  10. ALPRAZOLAM. [Concomitant]
     Active Substance: ALPRAZOLAM
     Dosage: UNK
     Route: 065
     Dates: start: 20141114
  11. IBUFLAM [Concomitant]
     Active Substance: IBUPROFEN
     Indication: PRODUCT USED FOR UNKNOWN INDICATION
     Dosage: UNK
     Route: 065
  12. VALSACOR [Concomitant]
     Active Substance: VALSARTAN
     Indication: PRODUCT USED FOR UNKNOWN INDICATION
     Dosage: UNK (80/125MG)
     Route: 065
     Dates: start: 20141017
  13. VALSARTAN 1 A PHARMA [Suspect]
     Active Substance: VALSARTAN
     Dosage: 80 MG, UNK
     Route: 065
     Dates: start: 20150108
  14. VALSARTAN HCTZ [Suspect]
     Active Substance: HYDROCHLOROTHIAZIDE\VALSARTAN
     Indication: PRODUCT USED FOR UNKNOWN INDICATION
     Dosage: UNK MG, UNK
     Route: 065
     Dates: start: 20140617
  15. LYRICA [Concomitant]
     Active Substance: PREGABALIN
     Dosage: UNK (150MG STRENGTH)
     Route: 065
     Dates: start: 20140320
  16. LYRICA [Concomitant]
     Active Substance: PREGABALIN
     Dosage: UNK (150MG STRENGTH)
     Route: 065
     Dates: start: 20140513
  17. LYRICA [Concomitant]
     Active Substance: PREGABALIN
     Dosage: UNK (150MG STRENGTH)
     Route: 065
     Dates: start: 20140708
  18. VALDOXAN [Concomitant]
     Active Substance: AGOMELATINE
     Indication: PRODUCT USED FOR UNKNOWN INDICATION
     Dosage: UNK
     Route: 065
     Dates: start: 20140206
  19. INUVAIR [Concomitant]
     Active Substance: BECLOMETHASONE DIPROPIONATE\FORMOTEROL FUMARATE
     Dosage: UNK (100/6UG)
     Route: 065
     Dates: start: 20140627
  20. INUVAIR [Concomitant]
     Active Substance: BECLOMETHASONE DIPROPIONATE\FORMOTEROL FUMARATE
     Dosage: UNK (100/6UG)
     Route: 065
     Dates: start: 20140715
  21. MCP [Concomitant]
     Active Substance: METOCLOPRAMIDE HYDROCHLORIDE
     Indication: PRODUCT USED FOR UNKNOWN INDICATION
     Dosage: UNK
     Route: 065
     Dates: start: 20141017
  22. VALSARTAN 1 A PHARMA [Suspect]
     Active Substance: VALSARTAN
     Indication: PRODUCT USED FOR UNKNOWN INDICATION
     Dosage: 80 MG, UNK
     Route: 065
     Dates: start: 20140916
  23. LYRICA [Concomitant]
     Active Substance: PREGABALIN
     Dosage: UNK (150MG STRENGTH)
     Route: 065
     Dates: start: 20140929
  24. INUVAIR [Concomitant]
     Active Substance: BECLOMETHASONE DIPROPIONATE\FORMOTEROL FUMARATE
     Dosage: UNK (100/6UG)
     Route: 065
     Dates: start: 20141105
  25. VALSARTAN DURA [Concomitant]
     Active Substance: VALSARTAN
     Indication: PRODUCT USED FOR UNKNOWN INDICATION
     Dosage: UNK (40MG)
     Route: 065
     Dates: start: 20140429
  26. VALSARTAN DURA [Concomitant]
     Active Substance: VALSARTAN
     Dosage: UNK  (40MG)
     Route: 065
     Dates: start: 20140527
  27. SERTRALIN BASICS [Concomitant]
     Dosage: UNK (100 MG)
     Route: 065
     Dates: start: 20140819
  28. ALVALIN [Concomitant]
     Dosage: UNK
     Route: 065
     Dates: start: 20140311
  29. VALDOXAN [Concomitant]
     Active Substance: AGOMELATINE
     Dosage: UNK
     Route: 065
     Dates: start: 20140513
  30. ESOMEPRAZOL TAD [Concomitant]
     Dosage: UNK
     Route: 065
     Dates: start: 20141215
  31. VALSARTAN DURA [Concomitant]
     Active Substance: VALSARTAN
     Dosage: UNK  (40MG)
     Route: 065
     Dates: start: 20140929
  32. SERTRALIN BASICS [Concomitant]
     Indication: PRODUCT USED FOR UNKNOWN INDICATION
     Dosage: UNK (50 MG)
     Route: 065
     Dates: start: 20140513
  33. SERTRALIN BASICS [Concomitant]
     Dosage: UNK (100 MG)
     Route: 065
     Dates: start: 20140513
  34. VALSACOR [Concomitant]
     Active Substance: VALSARTAN
     Dosage: UNK (80/125MG)
     Route: 065
     Dates: start: 20141215
  35. FINALGON [Concomitant]
     Indication: PRODUCT USED FOR UNKNOWN INDICATION
     Dosage: UNK
     Route: 065
     Dates: start: 20140129
  36. CIATYL-Z [Concomitant]
     Active Substance: ZUCLOPENTHIXOL
     Indication: PRODUCT USED FOR UNKNOWN INDICATION
     Dosage: UNK
     Route: 065
     Dates: start: 20140226
  37. SERTRALIN BASICS [Concomitant]
     Dosage: UNK (100 MG)
     Route: 065
     Dates: start: 20140709
  38. BERODUAL N [Concomitant]
     Active Substance: FENOTEROL HYDROBROMIDE\IPRATROPIUM BROMIDE
     Indication: PRODUCT USED FOR UNKNOWN INDICATION
     Dosage: UNK ML, UNK
     Route: 065
     Dates: start: 20140527
  39. VALSARTAN ACTAVIS [Concomitant]
     Active Substance: VALSARTAN
     Indication: PRODUCT USED FOR UNKNOWN INDICATION
     Dosage: UNK
     Route: 065
     Dates: start: 20140617
  40. ALPRAZOLAM. [Concomitant]
     Active Substance: ALPRAZOLAM
     Indication: PRODUCT USED FOR UNKNOWN INDICATION
     Dosage: UNK
     Route: 065
     Dates: start: 20140627
  41. LYRICA [Concomitant]
     Active Substance: PREGABALIN
     Dosage: UNK (300MG STRENGTH)
     Route: 065
     Dates: start: 20140206
  42. LYRICA [Concomitant]
     Active Substance: PREGABALIN
     Dosage: UNK (150MG STRENGTH)
     Route: 065
     Dates: start: 20140819
  43. LYRICA [Concomitant]
     Active Substance: PREGABALIN
     Dosage: UNK (150MG)
     Route: 065
     Dates: start: 20141114
  44. ESOMEPRAZOL TAD [Concomitant]
     Dosage: UNK
     Route: 065
     Dates: start: 20140617
  45. VALSARTAN ACTAVIS [Concomitant]
     Active Substance: VALSARTAN
     Dosage: UNK
     Route: 065
     Dates: start: 20140709
  46. OPIPRAMOL-NEURAXPHARM [Concomitant]
     Active Substance: OPIPRAMOL
     Indication: PRODUCT USED FOR UNKNOWN INDICATION
     Dosage: UNK
     Route: 065
     Dates: start: 20140129
  47. LYRICA [Concomitant]
     Active Substance: PREGABALIN
     Indication: PRODUCT USED FOR UNKNOWN INDICATION
     Dosage: UNK (150 MG STRENGTH)
     Route: 065
     Dates: start: 20140129
  48. PROMETHAZINE [Concomitant]
     Active Substance: PROMETHAZINE\PROMETHAZINE HYDROCHLORIDE
     Indication: PRODUCT USED FOR UNKNOWN INDICATION
     Dosage: UNK
     Route: 065
     Dates: start: 20140206
  49. PROMETHAZINE [Concomitant]
     Active Substance: PROMETHAZINE\PROMETHAZINE HYDROCHLORIDE
     Dosage: UNK
     Route: 065
     Dates: start: 20140708
  50. VALSARTAN DURA [Concomitant]
     Active Substance: VALSARTAN
     Dosage: UNK  (40MG)
     Route: 065
     Dates: start: 20140616
  51. SERTRALIN BASICS [Concomitant]
     Dosage: UNK (100 MG)
     Route: 065
     Dates: start: 20141114

REACTIONS (1)
  - Breast cancer [Unknown]

NARRATIVE: CASE EVENT DATE: 20170119
